FAERS Safety Report 7164209 (Version 7)
Quarter: 2013Q2

REPORT INFORMATION
  Report Type: Spontaneous
  Country: GB (occurrence: GB)
  Receive Date: 20091102
  Receipt Date: 20130510
  Transmission Date: 20140414
  Serious: Yes (Hospitalization)
  Sender: FDA-Public Use
  Company Number: GB-ALEXION-A200900869

PATIENT
  Age: 40 Year
  Sex: Female

DRUGS (4)
  1. SOLIRIS [Suspect]
     Indication: PAROXYSMAL NOCTURNAL HAEMOGLOBINURIA
     Dosage: 600 MG, QW
     Route: 042
     Dates: start: 2004
  2. SOLIRIS [Suspect]
     Dosage: 900 MG, SINGLE
     Route: 042
  3. SOLIRIS [Suspect]
     Dosage: 900 MG, Q2W
     Route: 042
  4. WARFARIN [Concomitant]

REACTIONS (3)
  - Meningitis meningococcal [Recovered/Resolved]
  - Viral infection [Recovered/Resolved]
  - Meningococcal sepsis [Recovered/Resolved]
